FAERS Safety Report 8232298-6 (Version None)
Quarter: 2012Q1

REPORT INFORMATION
  Report Type: 
  Country: None (occurrence: None)
  Receive Date: 20120323
  Receipt Date: 20120312
  Transmission Date: 20120608
  Serious: Yes (Other)
  Sender: FDA-Public Use
  Company Number: US-ELI_LILLY_AND_COMPANY-US201203003369

PATIENT
  Sex: Male

DRUGS (1)
  1. AXIRON [Suspect]
     Indication: HYPOGONADISM
     Dosage: 60 MG, UNKNOWN
     Dates: start: 20111001

REACTIONS (2)
  - BRAIN NEOPLASM [None]
  - BLOOD TESTOSTERONE DECREASED [None]
